FAERS Safety Report 5733973-5 (Version None)
Quarter: 2008Q2

REPORT INFORMATION
  Report Type: 
  Country: None (occurrence: None)
  Receive Date: 20080509
  Receipt Date: 20080428
  Transmission Date: 20081010
  Serious: Yes (Other)
  Sender: FDA-Public Use
  Company Number: US-PFIZER INC-2008037777

PATIENT
  Sex: Female
  Weight: 118 kg

DRUGS (11)
  1. LYRICA [Suspect]
     Indication: FIBROMYALGIA
     Dates: start: 20070122, end: 20070201
  2. LASIX [Concomitant]
  3. POTASSIUM CHLORIDE [Concomitant]
  4. SYNTHROID [Concomitant]
  5. AMLODIPINE [Concomitant]
  6. PROZAC [Concomitant]
  7. VITAMINS [Concomitant]
  8. AVAPRO [Concomitant]
  9. ARTHROTEC [Concomitant]
  10. OXYCODONE HCL [Concomitant]
  11. OXYCONTIN [Concomitant]

REACTIONS (1)
  - CARDIAC FAILURE CONGESTIVE [None]
